FAERS Safety Report 4866775-2 (Version None)
Quarter: 2005Q4

REPORT INFORMATION
  Report Type: 
  Country: None (occurrence: None)
  Receive Date: 20051221
  Receipt Date: 20051213
  Transmission Date: 20060501
  Serious: Yes (Hospitalization)
  Sender: FDA-Public Use
  Company Number: SE-2005-000986

PATIENT
  Age: 46 Year
  Sex: Female

DRUGS (1)
  1. LEVONOVA(LEVONORGESTREL) IUS [Suspect]
     Indication: CONTRACEPTION
     Dosage: 20 UG/DAY, CONT, INTRA-UTERINE
     Route: 015
     Dates: start: 20040203, end: 20050119

REACTIONS (3)
  - BREAST CANCER FEMALE [None]
  - BREAST DISCOMFORT [None]
  - DYSMENORRHOEA [None]
